FAERS Safety Report 9847530 (Version 1)
Quarter: 2014Q1

REPORT INFORMATION
  Report Type: Spontaneous
  Country: US (occurrence: US)
  Receive Date: 20140128
  Receipt Date: 20140128
  Transmission Date: 20141002
  Serious: Yes (Hospitalization)
  Sender: FDA-Public Use
  Company Number: US-ROCHE-1340339

PATIENT
  Age: 15 Year
  Sex: Female

DRUGS (7)
  1. XOLAIR [Suspect]
     Indication: ASTHMA
     Route: 058
  2. ADVAIR DISKUS [Concomitant]
  3. PROAIR (UNITED STATES) [Concomitant]
     Route: 055
  4. ALLEGRA [Concomitant]
  5. LORATADINE [Concomitant]
  6. BENADRYL (UNITED STATES) [Concomitant]
  7. EPIPEN [Concomitant]

REACTIONS (2)
  - Respiratory failure [Unknown]
  - Nasopharyngitis [Unknown]
